FAERS Safety Report 5611293-7 (Version None)
Quarter: 2008Q1

REPORT INFORMATION
  Report Type: 
  Country: None (occurrence: None)
  Receive Date: 20080201
  Receipt Date: 20080129
  Transmission Date: 20080703
  Serious: Yes (Hospitalization)
  Sender: FDA-Public Use
  Company Number: US-ASTRAZENECA-2008AP00657

PATIENT
  Age: 30439 Day
  Sex: Female
  Weight: 51 kg

DRUGS (16)
  1. MEROPENEM [Suspect]
     Route: 042
     Dates: start: 20070518, end: 20070525
  2. ZYVOX SOLUTION [Suspect]
     Indication: PNEUMONIA
     Route: 042
     Dates: start: 20070519, end: 20070526
  3. ZYVOX SOLUTION [Suspect]
     Indication: STAPHYLOCOCCAL INFECTION
     Route: 042
     Dates: start: 20070519, end: 20070526
  4. DALACIN S [Suspect]
     Route: 042
     Dates: start: 20070519, end: 20070528
  5. FRAGMIN [Suspect]
     Route: 042
     Dates: start: 20070518
  6. PLETAL [Suspect]
     Route: 048
     Dates: end: 20070530
  7. SAXIZON [Suspect]
     Route: 042
     Dates: start: 20070519
  8. NORADRENALINE [Concomitant]
     Dates: start: 20070519
  9. MIDAZOLAM HCL [Concomitant]
     Dates: start: 20070519
  10. LEPETAN [Concomitant]
  11. ELASPOL [Concomitant]
     Route: 042
     Dates: start: 20070519, end: 20070601
  12. PLATELETS [Concomitant]
     Route: 042
     Dates: start: 20070519, end: 20070519
  13. RED BLOOD CELLS [Concomitant]
     Route: 042
     Dates: start: 20070519, end: 20070519
  14. FRESH FROZEN PLASMA [Concomitant]
     Route: 042
     Dates: start: 20070519, end: 20070519
  15. MIRACLID [Concomitant]
     Route: 042
     Dates: start: 20070519, end: 20070520
  16. SULPERAZON [Concomitant]
     Route: 042
     Dates: start: 20070517, end: 20070518

REACTIONS (5)
  - DIABETES MELLITUS [None]
  - GASTROINTESTINAL HAEMORRHAGE [None]
  - PLATELET COUNT DECREASED [None]
  - PSEUDOMONAS INFECTION [None]
  - SUPERINFECTION [None]
